FAERS Safety Report 15971271 (Version 16)
Quarter: 2022Q4

REPORT INFORMATION
  Report Type: Report from Study
  Country: CA (occurrence: CA)
  Receive Date: 20190215
  Receipt Date: 20221020
  Transmission Date: 20230112
  Serious: Yes (Other)
  Sender: FDA-Public Use
  Company Number: PHHY2015CA052243

PATIENT
  Age: 72 Year
  Sex: Female

DRUGS (6)
  1. SANDOSTATIN LAR DEPOT [Suspect]
     Active Substance: OCTREOTIDE ACETATE
     Indication: Metastatic carcinoid tumour
     Dosage: 30 MG, QMO (ONCE A MONTH)
     Route: 030
     Dates: start: 20140624
  2. SANDOSTATIN LAR DEPOT [Suspect]
     Active Substance: OCTREOTIDE ACETATE
     Dosage: 60 MG, Q2W  (2 WEEKS)
     Route: 030
     Dates: start: 20140624
  3. SANDOSTATIN LAR DEPOT [Suspect]
     Active Substance: OCTREOTIDE ACETATE
     Dosage: 30 MG, QMO (EVERY 4 WEEKS)
     Route: 030
     Dates: start: 20150702
  4. SANDOSTATIN LAR DEPOT [Suspect]
     Active Substance: OCTREOTIDE ACETATE
     Dosage: 30 MG, Q3W (EVERY 3 WEEKS)
     Route: 030
  5. SANDOSTATIN LAR DEPOT [Suspect]
     Active Substance: OCTREOTIDE ACETATE
     Dosage: 50 MG, Q2W
     Route: 030
  6. SANDOSTATIN LAR DEPOT [Suspect]
     Active Substance: OCTREOTIDE ACETATE
     Dosage: 60 MG, Q2W
     Route: 030

REACTIONS (15)
  - Blood pressure increased [Unknown]
  - Headache [Unknown]
  - Visual impairment [Unknown]
  - Fatigue [Unknown]
  - Malaise [Unknown]
  - Head discomfort [Unknown]
  - Mass [Unknown]
  - Pain in extremity [Recovered/Resolved]
  - Arthralgia [Unknown]
  - Thermal burn [Unknown]
  - Heart rate decreased [Unknown]
  - Dizziness [Recovered/Resolved]
  - Inappropriate schedule of product administration [Unknown]
  - Injection site mass [Unknown]
  - Drug ineffective [Unknown]

NARRATIVE: CASE EVENT DATE: 20150427
